FAERS Safety Report 8585752-1 (Version None)
Quarter: 2012Q3

REPORT INFORMATION
  Report Type: 
  Country: None (occurrence: None)
  Receive Date: 20120810
  Receipt Date: 20120730
  Transmission Date: 20120928
  Serious: No
  Sender: FDA-Public Use
  Company Number: US-BAYER-2012-077238

PATIENT
  Sex: Female

DRUGS (1)
  1. YAZ [Suspect]
     Indication: MENSTRUATION IRREGULAR
     Dosage: TAKING FOR 6 YEARS
     Dates: end: 20120501

REACTIONS (3)
  - AMENORRHOEA [None]
  - FEELING ABNORMAL [None]
  - ALOPECIA [None]
